FAERS Safety Report 7007971-8 (Version None)
Quarter: 2010Q3

REPORT INFORMATION
  Report Type: 
  Country: None (occurrence: None)
  Receive Date: 20100920
  Receipt Date: 20100915
  Transmission Date: 20110219
  Serious: Yes (Life-Threatening, Hospitalization)
  Sender: FDA-Public Use
  Company Number: 2010SP049008

PATIENT
  Age: 60 Year
  Sex: Female

DRUGS (17)
  1. MIRTAZAPINE [Suspect]
     Indication: PRODUCT USED FOR UNKNOWN INDICATION
     Dosage: 30 MG;QPM;PO
     Route: 048
     Dates: end: 20100810
  2. REMICADE [Suspect]
     Indication: RHEUMATOID ARTHRITIS
     Dosage: 5 MG/KG;UNK;IV
     Route: 042
     Dates: start: 20081201, end: 20100716
  3. NOVATREX (METHOTREXATE) (METHOTREXATE) [Suspect]
     Indication: RHEUMATOID ARTHRITIS
     Dosage: 6 DF;QW;PO
     Route: 048
     Dates: start: 20000101, end: 20100810
  4. PREDNISONE [Suspect]
     Indication: RHEUMATOID ARTHRITIS
     Dosage: 14 MG;QD;PO  : 28 MG;QD
     Route: 048
     Dates: start: 20100201, end: 20100810
  5. FOLIC ACID [Suspect]
     Indication: PRODUCT USED FOR UNKNOWN INDICATION
     Dosage: 5 MG;TIW;PO
     Route: 048
     Dates: end: 20100810
  6. TRANXENE [Suspect]
     Indication: PRODUCT USED FOR UNKNOWN INDICATION
     Dosage: 10 MG;QD;PO
     Route: 048
     Dates: end: 20100810
  7. ATARAX [Suspect]
     Indication: PRODUCT USED FOR UNKNOWN INDICATION
     Dosage: 300 MG;QD;PO
     Route: 048
     Dates: end: 20100810
  8. LIPANOR (CIPROFIBRATE) [Suspect]
     Indication: PRODUCT USED FOR UNKNOWN INDICATION
     Dosage: 100 MG;QD;PO
     Route: 048
  9. CALCIUM CARBONATE [Suspect]
     Indication: PRODUCT USED FOR UNKNOWN INDICATION
     Dosage: 500 MG;QD
     Dates: end: 20100810
  10. FOSAVANCE (FOSAVANCE) [Suspect]
     Indication: PRODUCT USED FOR UNKNOWN INDICATION
     Dosage: 1 DF;QW;PO
     Route: 048
     Dates: end: 20100810
  11. MORPHINE SULFATE [Suspect]
     Indication: PRODUCT USED FOR UNKNOWN INDICATION
     Dosage: 30 MG;BID;PO
     Route: 048
     Dates: end: 20100810
  12. MORPHINE SULFATE [Suspect]
     Indication: PRODUCT USED FOR UNKNOWN INDICATION
     Dosage: PRN;PO
     Route: 048
     Dates: end: 20100810
  13. LEVOTHYROXINE SODIUM [Concomitant]
  14. NEXIUM [Concomitant]
  15. EUPANTOL [Concomitant]
  16. PARACETAMOL [Concomitant]
  17. ZOLPIDEM [Concomitant]

REACTIONS (5)
  - ACIDOSIS [None]
  - DYSPNOEA [None]
  - HYPERHIDROSIS [None]
  - LUNG DISORDER [None]
  - SEPSIS [None]
